FAERS Safety Report 5977359-7 (Version None)
Quarter: 2008Q4

REPORT INFORMATION
  Report Type: 
  Country: None (occurrence: None)
  Receive Date: 20081203
  Receipt Date: 20081125
  Transmission Date: 20090506
  Serious: Yes (Hospitalization)
  Sender: FDA-Public Use
  Company Number: PHHY2008IT29962

PATIENT
  Age: 87 Year
  Sex: Female

DRUGS (2)
  1. TEGRETOL [Suspect]
     Indication: TRIGEMINAL NEURALGIA
     Dosage: 1200 MG/DAY
     Route: 048
     Dates: start: 20081101, end: 20081109
  2. NORVASC [Concomitant]
     Dosage: 10 MG, UNK
     Route: 048

REACTIONS (10)
  - AZOTAEMIA [None]
  - BLOOD CREATININE INCREASED [None]
  - CONFUSIONAL STATE [None]
  - GAMMA-GLUTAMYLTRANSFERASE INCREASED [None]
  - HAEMOGLOBIN DECREASED [None]
  - NAUSEA [None]
  - SINUS ARREST [None]
  - TREMOR [None]
  - VERTIGO [None]
  - VOMITING [None]
